FAERS Safety Report 6017680-X (Version None)
Quarter: 2008Q4

REPORT INFORMATION
  Report Type: 
  Country: None (occurrence: None)
  Receive Date: 20081223
  Receipt Date: 20081219
  Transmission Date: 20090506
  Serious: Yes (Hospitalization)
  Sender: FDA-Public Use
  Company Number: GB-ROCHE-604384

PATIENT
  Sex: Female
  Weight: 106.1 kg

DRUGS (6)
  1. ORLISTAT [Suspect]
     Indication: OBESITY
     Route: 048
     Dates: start: 20080811
  2. SINGULAIR [Concomitant]
     Indication: ASTHMA
     Route: 048
  3. UNSPECIFIED DRUG [Concomitant]
     Indication: ASTHMA
     Dosage: REPORTED AS TURBOHALER.
     Route: 055
  4. ASMANEX TWISTHALER [Concomitant]
     Indication: ASTHMA
     Route: 055
  5. SEREVENT [Concomitant]
     Indication: ASTHMA
     Route: 055
  6. LORATADINE [Concomitant]
     Dosage: REPORTED AS LORETADINE.
     Route: 048

REACTIONS (1)
  - PNEUMONIA [None]
